FAERS Safety Report 14827755 (Version 1)
Quarter: 2018Q2

REPORT INFORMATION
  Report Type: Spontaneous
  Country: US (occurrence: US)
  Receive Date: 20180420
  Receipt Date: 20180420
  Transmission Date: 20180711
  Serious: Yes (Hospitalization)
  Sender: FDA-Public Use
  Company Number: None

PATIENT
  Age: 83 Year
  Sex: Female
  Weight: 74 kg

DRUGS (1)
  1. BENICAR [Suspect]
     Active Substance: OLMESARTAN MEDOXOMIL
     Dosage: 2 YEARS OR MORE
     Route: 048

REACTIONS (5)
  - Muscle spasms [None]
  - Acute kidney injury [None]
  - Hypokalaemia [None]
  - Hypomagnesaemia [None]
  - Hypoglycaemia [None]

NARRATIVE: CASE EVENT DATE: 20180404
